FAERS Safety Report 26011677 (Version 1)
Quarter: 2025Q4

REPORT INFORMATION
  Report Type: Report from Study
  Country: CL (occurrence: CL)
  Receive Date: 20251107
  Receipt Date: 20251107
  Transmission Date: 20260118
  Serious: Yes (Other)
  Sender: ABBVIE
  Company Number: CL-ABBVIE-6536148

PATIENT
  Age: 45 Year
  Sex: Female

DRUGS (1)
  1. RINVOQ [Suspect]
     Active Substance: UPADACITINIB
     Indication: Rheumatoid arthritis
     Dosage: FORM STRENGTH:15MG X 30 TABLETS
     Route: 048
     Dates: start: 20251025, end: 20251030

REACTIONS (9)
  - Respiratory disorder [Recovering/Resolving]
  - Hypersensitivity [Recovering/Resolving]
  - Dyspnoea [Recovering/Resolving]
  - Acne [Recovered/Resolved]
  - Oropharyngeal blistering [Recovered/Resolved]
  - Feeling abnormal [Not Recovered/Not Resolved]
  - Stomatitis [Recovered/Resolved]
  - Oral mucosal blistering [Recovered/Resolved]
  - Oesophageal mucosal blister [Recovered/Resolved]

NARRATIVE: CASE EVENT DATE: 20250101
